FAERS Safety Report 11520259 (Version 1)
Quarter: 2015Q3

REPORT INFORMATION
  Report Type: Spontaneous
  Country: US (occurrence: US)
  Receive Date: 20150918
  Receipt Date: 20150918
  Transmission Date: 20151125
  Serious: No
  Sender: FDA-Public Use
  Company Number: US-RB-074474-15

PATIENT

DRUGS (1)
  1. MUCINEX [Suspect]
     Active Substance: GUAIFENESIN
     Indication: FIBROMYALGIA
     Dosage: 600MG. ,QD
     Route: 065

REACTIONS (5)
  - Gastrooesophageal reflux disease [Recovered/Resolved]
  - Abdominal pain upper [Recovered/Resolved]
  - Dyspepsia [Recovered/Resolved]
  - Flatulence [Recovered/Resolved]
  - Hepatic enzyme increased [Recovered/Resolved]
